FAERS Safety Report 11792762 (Version 1)
Quarter: 2015Q4

REPORT INFORMATION
  Report Type: Spontaneous
  Country: IN (occurrence: None)
  Receive Date: 20151130
  Receipt Date: 20151130
  Transmission Date: 20160305
  Serious: Yes (Hospitalization)
  Sender: FDA-Public Use
  Company Number: 2015R1-106528

PATIENT
  Age: 49 Year
  Sex: Male

DRUGS (3)
  1. PHENYTOIN (PHENYTOIN) INJECTION [Suspect]
     Active Substance: PHENYTOIN
     Indication: SEIZURE
  2. DIAZEPAM (DIAZEPAM) TABLET [Suspect]
     Active Substance: DIAZEPAM
     Indication: SEIZURE
  3. RANITIDINE [Suspect]
     Active Substance: RANITIDINE\RANITIDINE HYDROCHLORIDE
     Indication: PRODUCT USED FOR UNKNOWN INDICATION

REACTIONS (4)
  - Pyrexia [None]
  - Drug interaction [None]
  - Hypersensitivity [None]
  - Toxicity to various agents [None]
